FAERS Safety Report 8915365 (Version 2)
Quarter: 2012Q4

REPORT INFORMATION
  Report Type: 
  Country: JP (occurrence: JP)
  Receive Date: 20121119
  Receipt Date: 20121228
  Transmission Date: 20130627
  Serious: Yes (Other)
  Sender: FDA-Public Use
  Company Number: JP-AMGEN-JPNCT2012073949

PATIENT
  Age: 64 Year
  Sex: Female
  Weight: 68 kg

DRUGS (13)
  1. ROMIPLOSTIM - KHK [Suspect]
     Indication: IDIOPATHIC THROMBOCYTOPENIC PURPURA
     Dosage: 3.26 mug/kg, qd
     Route: 058
     Dates: start: 20120120
  2. PREDNISOLONE [Concomitant]
     Indication: IDIOPATHIC THROMBOCYTOPENIC PURPURA
     Dosage: 10 mg, UNK
     Route: 048
     Dates: start: 20111230
  3. PREDNISOLONE [Concomitant]
     Dosage: 10 mg, UNK
     Route: 048
     Dates: start: 20120317, end: 20120406
  4. LASIX [Concomitant]
     Indication: OEDEMA PERIPHERAL
     Dosage: UNK
     Route: 065
  5. ROCALTROL [Concomitant]
     Indication: PROPHYLAXIS
     Dosage: UNK
     Route: 065
  6. GASTER [Concomitant]
     Indication: PROPHYLAXIS
     Dosage: UNK
     Route: 048
  7. GASTROM [Concomitant]
     Indication: PROPHYLAXIS
     Dosage: UNK
     Route: 048
  8. MAGMITT [Concomitant]
     Indication: CONSTIPATION
     Dosage: UNK
     Route: 048
  9. BAKTAR [Concomitant]
     Indication: PROPHYLAXIS
     Dosage: UNK
     Route: 048
  10. FASTIC [Concomitant]
     Indication: DIABETES MELLITUS
     Dosage: UNK
     Route: 048
  11. LOXONIN [Concomitant]
     Indication: ARTHRALGIA
     Dosage: UNK
     Route: 062
  12. PL GRAN. [Concomitant]
     Indication: PROPHYLAXIS
     Dosage: UNK
     Route: 048
  13. FERROMIA [Concomitant]
     Indication: IRON DEFICIENCY ANAEMIA
     Dosage: UNK
     Route: 048

REACTIONS (2)
  - Platelet count increased [Recovered/Resolved]
  - Hypertension [Recovered/Resolved]
